FAERS Safety Report 14382179 (Version 4)
Quarter: 2018Q4

REPORT INFORMATION
  Report Type: Spontaneous
  Country: PT (occurrence: PT)
  Receive Date: 20180112
  Receipt Date: 20181126
  Transmission Date: 20190204
  Serious: Yes (Hospitalization, Disabling, Other)
  Sender: FDA-Public Use
  Company Number: GB-SA-2018SA000439

PATIENT
  Age: 70 Year
  Sex: Female

DRUGS (2)
  1. DOCETAXEL. [Suspect]
     Active Substance: DOCETAXEL
     Indication: NEUROENDOCRINE TUMOUR OF THE LUNG METASTATIC
     Dosage: UNK, QCY
  2. CARBOPLATIN. [Suspect]
     Active Substance: CARBOPLATIN
     Indication: NEUROENDOCRINE TUMOUR OF THE LUNG METASTATIC
     Dosage: UNK UNK, QCY

REACTIONS (12)
  - Escherichia bacteraemia [Recovered/Resolved]
  - Febrile neutropenia [Recovered/Resolved]
  - Bacterial pyelonephritis [Recovered/Resolved]
  - Escherichia sepsis [Recovered/Resolved]
  - Off label use [Unknown]
  - Inflammation [Unknown]
  - Amaurosis [Not Recovered/Not Resolved]
  - Urosepsis [Recovered/Resolved]
  - Pruritus [Unknown]
  - Immunosuppression [Recovered/Resolved]
  - Panophthalmitis [Recovered/Resolved with Sequelae]
  - Product use in unapproved indication [Unknown]
